FAERS Safety Report 10102262 (Version 2)
Quarter: 2014Q2

REPORT INFORMATION
  Report Type: Spontaneous
  Country: US (occurrence: US)
  Receive Date: 20140424
  Receipt Date: 20140512
  Transmission Date: 20141212
  Serious: No
  Sender: FDA-Public Use
  Company Number: US-009507513-1404USA011288

PATIENT
  Age: 67 Year
  Sex: Female
  Weight: 74.83 kg

DRUGS (1)
  1. OXYTROL FOR WOMEN [Suspect]
     Indication: HYPERTONIC BLADDER
     Dosage: UNK UNK, UNKNOWN
     Route: 062
     Dates: start: 20140323, end: 20140330

REACTIONS (5)
  - Erythema [Recovered/Resolved]
  - Rash [Unknown]
  - Application site erythema [Recovered/Resolved]
  - Inappropriate schedule of drug administration [Unknown]
  - Wrong technique in drug usage process [Unknown]
